FAERS Safety Report 6719464-3 (Version None)
Quarter: 2010Q2

REPORT INFORMATION
  Report Type: 
  Country: None (occurrence: None)
  Receive Date: 20100511
  Receipt Date: 20100504
  Transmission Date: 20101027
  Serious: Yes (Hospitalization, Other)
  Sender: FDA-Public Use
  Company Number: DK-ROCHE-664965

PATIENT
  Sex: Female
  Weight: 70 kg

DRUGS (10)
  1. ROACTEMRA [Suspect]
     Route: 042
     Dates: start: 20090114
  2. ROACTEMRA [Suspect]
     Route: 042
     Dates: start: 20090603, end: 20090624
  3. ROACTEMRA [Suspect]
     Route: 042
     Dates: start: 20090625
  4. ROACTEMRA [Suspect]
     Route: 042
     Dates: start: 20090723
  5. ROACTEMRA [Suspect]
     Route: 042
     Dates: start: 20090821, end: 20100324
  6. PREDNISOLONE [Concomitant]
     Dates: start: 20070821
  7. PREDNISOLONE [Concomitant]
     Dates: start: 20080630
  8. PREDNISOLONE [Concomitant]
     Dates: start: 20090625, end: 20091207
  9. METHOTREXATE [Concomitant]
     Dates: start: 20080930
  10. METHOTREXATE [Concomitant]
     Dates: start: 20090625

REACTIONS (2)
  - AORTIC DISSECTION [None]
  - HERPES ZOSTER [None]
